FAERS Safety Report 5636739-X (Version None)
Quarter: 2008Q1

REPORT INFORMATION
  Report Type: 
  Country: None (occurrence: None)
  Receive Date: 20080225
  Receipt Date: 20080215
  Transmission Date: 20080703
  Serious: Yes (Hospitalization)
  Sender: FDA-Public Use
  Company Number: FR-WYE-G00455807

PATIENT
  Sex: Male
  Weight: 100 kg

DRUGS (5)
  1. EFFEXOR [Suspect]
     Indication: DEPRESSION
     Dosage: UNKNOWN
     Route: 048
     Dates: start: 20070301, end: 20070901
  2. LEVOTHYROX [Concomitant]
     Dosage: UNKNOWN
  3. AMLOR [Suspect]
     Route: 048
     Dates: end: 20070901
  4. MOBIC [Suspect]
     Dosage: UNKNOWN
     Route: 048
     Dates: start: 20070701, end: 20070901
  5. CONTRAMAL [Suspect]
     Dosage: UNKNOWN
     Route: 048
     Dates: start: 20070701, end: 20070901

REACTIONS (16)
  - ACUTE PRERENAL FAILURE [None]
  - AORTIC DILATATION [None]
  - AORTIC VALVE INCOMPETENCE [None]
  - CARDIAC FAILURE [None]
  - CHOLESTASIS [None]
  - CONGESTIVE CARDIOMYOPATHY [None]
  - ERYTHROSIS [None]
  - GALLBLADDER DISORDER [None]
  - HEPATIC FAILURE [None]
  - HEPATITIS FULMINANT [None]
  - HYPERGAMMAGLOBULINAEMIA [None]
  - MITRAL VALVE INCOMPETENCE [None]
  - PERICARDIAL EFFUSION [None]
  - SLEEP DISORDER [None]
  - THROMBOCYTOPENIA [None]
  - UPPER RESPIRATORY TRACT INFECTION [None]
